FAERS Safety Report 19363061 (Version 18)
Quarter: 2023Q4

REPORT INFORMATION
  Report Type: Spontaneous
  Country: CA (occurrence: CA)
  Receive Date: 20210603
  Receipt Date: 20231118
  Transmission Date: 20240110
  Serious: Yes (Other)
  Sender: FDA-Public Use
  Company Number: CA-CELLTRION INC.-2019CA027926

PATIENT

DRUGS (29)
  1. INFLECTRA [Suspect]
     Active Substance: INFLIXIMAB-DYYB
     Indication: Crohn^s disease
     Dosage: 1100 MG, EVERY 8 WEEKS
     Route: 042
     Dates: start: 20191024
  2. INFLECTRA [Suspect]
     Active Substance: INFLIXIMAB-DYYB
     Dosage: 1100 MG, EVERY 8 WEEKS
     Route: 042
     Dates: start: 20191024
  3. INFLECTRA [Suspect]
     Active Substance: INFLIXIMAB-DYYB
     Dosage: 1100 MG, EVERY 8 WEEKS
     Route: 042
     Dates: start: 20200227
  4. INFLECTRA [Suspect]
     Active Substance: INFLIXIMAB-DYYB
     Dosage: 1100 MG, EVERY 8 WEEKS
     Route: 042
     Dates: start: 20200422
  5. INFLECTRA [Suspect]
     Active Substance: INFLIXIMAB-DYYB
     Dosage: 1100 MG, EVERY 8 WEEKS
     Route: 042
     Dates: start: 20200616
  6. INFLECTRA [Suspect]
     Active Substance: INFLIXIMAB-DYYB
     Dosage: 1100 MG, EVERY 8 WEEKS
     Route: 042
     Dates: start: 20200811
  7. INFLECTRA [Suspect]
     Active Substance: INFLIXIMAB-DYYB
     Dosage: 1100 MG, EVERY 8 WEEKS
     Route: 042
     Dates: start: 20201006
  8. INFLECTRA [Suspect]
     Active Substance: INFLIXIMAB-DYYB
     Dosage: 1100 MG, EVERY 8 WEEKS
     Route: 042
     Dates: start: 20201201
  9. INFLECTRA [Suspect]
     Active Substance: INFLIXIMAB-DYYB
     Dosage: 1100 MG, EVERY 8 WEEKS
     Route: 042
     Dates: start: 20210126
  10. INFLECTRA [Suspect]
     Active Substance: INFLIXIMAB-DYYB
     Dosage: 1100 MG, EVERY 8 WEEKS
     Route: 042
     Dates: start: 20210324
  11. INFLECTRA [Suspect]
     Active Substance: INFLIXIMAB-DYYB
     Dosage: 1100 MG, EVERY 8 WEEKS
     Route: 042
     Dates: start: 20210324
  12. INFLECTRA [Suspect]
     Active Substance: INFLIXIMAB-DYYB
     Dosage: 1100 MG, EVERY 8 WEEKS
     Route: 042
     Dates: start: 20210520
  13. INFLECTRA [Suspect]
     Active Substance: INFLIXIMAB-DYYB
     Dosage: 1100 MG, EVERY 8 WEEKS
     Route: 042
     Dates: start: 20210721
  14. INFLECTRA [Suspect]
     Active Substance: INFLIXIMAB-DYYB
     Dosage: 1100 MG, EVERY 8 WEEKS
     Route: 042
     Dates: start: 20210915
  15. INFLECTRA [Suspect]
     Active Substance: INFLIXIMAB-DYYB
     Dosage: 1100 MG, EVERY 8 WEEKS
     Route: 042
     Dates: start: 20211110
  16. INFLECTRA [Suspect]
     Active Substance: INFLIXIMAB-DYYB
     Dosage: 1100 MG, EVERY 8 WEEKS
     Route: 042
     Dates: start: 20220105
  17. INFLECTRA [Suspect]
     Active Substance: INFLIXIMAB-DYYB
     Dosage: 1100 MG, EVERY 8 WEEKS
     Route: 042
     Dates: start: 20220301
  18. INFLECTRA [Suspect]
     Active Substance: INFLIXIMAB-DYYB
     Dosage: 1100 MG, EVERY 8 WEEKS
     Route: 042
     Dates: start: 20220426
  19. INFLECTRA [Suspect]
     Active Substance: INFLIXIMAB-DYYB
     Dosage: 1100 MG, EVERY 8 WEEKS
     Route: 042
     Dates: start: 20220623
  20. INFLECTRA [Suspect]
     Active Substance: INFLIXIMAB-DYYB
     Dosage: 1100 MG, EVERY 8 WEEKS
     Route: 042
     Dates: start: 20230125
  21. INFLECTRA [Suspect]
     Active Substance: INFLIXIMAB-DYYB
     Dosage: 1100 MG, AFTER 8 WEEKS 2 DAYS(SUPPOSED TO RECEIVED EVERY 8 WEEKS)
     Route: 042
     Dates: start: 20230323
  22. INFLECTRA [Suspect]
     Active Substance: INFLIXIMAB-DYYB
     Dosage: UNK
     Route: 042
     Dates: start: 20230517
  23. INFLECTRA [Suspect]
     Active Substance: INFLIXIMAB-DYYB
     Dosage: 1100 MG, AFTER 8 WEEKS
     Route: 042
     Dates: start: 20230720
  24. INFLECTRA [Suspect]
     Active Substance: INFLIXIMAB-DYYB
     Dosage: 1100 MG, AFTER 7 WEEKS AND 6 DAYS
     Route: 042
     Dates: start: 20230913
  25. INFLECTRA [Suspect]
     Active Substance: INFLIXIMAB-DYYB
     Dosage: 1100 MG, 8 WEEKS
     Route: 042
     Dates: start: 20231108
  26. CHOLESTYRAMINE [Concomitant]
     Active Substance: CHOLESTYRAMINE
     Dosage: 1 DF, AS NEEDED (1 PACKAGE WITH TYLENOL #3 TWICE DAILY AS NEEDED)
     Route: 065
     Dates: start: 202003
  27. PREDNISONE ACETATE [Concomitant]
     Active Substance: PREDNISONE ACETATE
     Dosage: 1 DF
  28. PREDNISONE ACETATE [Concomitant]
     Active Substance: PREDNISONE ACETATE
     Dosage: 1 DF, DOSAGE INFORMATION NOT AVAILABLE
     Route: 065
  29. TYLENOL WITH CODEINE [Concomitant]
     Active Substance: ACETAMINOPHEN\CODEINE PHOSPHATE
     Dosage: 1 DF, AS NEEDED (TWICE DAILY AS NEEDED WITH OLESTYR)
     Route: 065
     Dates: start: 202003

REACTIONS (14)
  - Arthritis [Unknown]
  - Arthropathy [Unknown]
  - Gait disturbance [Unknown]
  - Arthralgia [Recovered/Resolved]
  - Condition aggravated [Not Recovered/Not Resolved]
  - Eye disorder [Unknown]
  - Eye infection [Recovering/Resolving]
  - Herpes zoster [Recovering/Resolving]
  - Rash pruritic [Not Recovered/Not Resolved]
  - Rash erythematous [Not Recovered/Not Resolved]
  - Off label use [Unknown]
  - Intentional product use issue [Unknown]
  - Intentional product use issue [Unknown]
  - Inappropriate schedule of product administration [Unknown]

NARRATIVE: CASE EVENT DATE: 20191101
